FAERS Safety Report 25948902 (Version 1)
Quarter: 2025Q4

REPORT INFORMATION
  Report Type: Report from Study
  Country: AU (occurrence: AU)
  Receive Date: 20251022
  Receipt Date: 20251022
  Transmission Date: 20260117
  Serious: Yes (Hospitalization)
  Sender: IPSEN BIOPHARMACEUTICALS, INC.
  Company Number: AU-IPSEN Group, Research and Development-2025-26097

PATIENT
  Age: 8 Year
  Sex: Female
  Weight: 17 kg

DRUGS (1)
  1. ODEVIXIBAT [Suspect]
     Active Substance: ODEVIXIBAT
     Indication: Alagille syndrome
     Dates: start: 202501

REACTIONS (2)
  - Diplopia [Unknown]
  - Headache [Unknown]
